FAERS Safety Report 23921306 (Version 2)
Quarter: 2024Q3

REPORT INFORMATION
  Report Type: Spontaneous
  Country: JP (occurrence: JP)
  Receive Date: 20240530
  Receipt Date: 20240704
  Transmission Date: 20241017
  Serious: Yes (Other)
  Sender: KYOWA
  Company Number: JP-KYOWAKIRIN-2024KK012729

PATIENT

DRUGS (14)
  1. CRYSVITA [Suspect]
     Active Substance: BUROSUMAB-TWZA
     Indication: Hypophosphataemic osteomalacia
     Dosage: 20 MG, 1X/4 WEEKS
     Route: 058
     Dates: start: 20210908
  2. CRYSVITA [Suspect]
     Active Substance: BUROSUMAB-TWZA
     Dosage: 20 MG, 1X/6WEEKS
     Route: 058
     Dates: start: 20240520
  3. TRAMADOL [Concomitant]
     Active Substance: TRAMADOL\TRAMADOL HYDROCHLORIDE
     Indication: Product used for unknown indication
     Dosage: 50 MG, BID
     Route: 048
     Dates: start: 2021
  4. TRAMADOL [Concomitant]
     Active Substance: TRAMADOL\TRAMADOL HYDROCHLORIDE
     Dosage: 25 MG, QD
     Route: 048
  5. PREGABALIN [Concomitant]
     Active Substance: PREGABALIN
     Indication: Product used for unknown indication
     Dosage: 50 MG, BID
     Route: 048
     Dates: start: 2021
  6. PREGABALIN [Concomitant]
     Active Substance: PREGABALIN
     Dosage: 25 MG, QD
     Route: 048
  7. CORTRIL [Concomitant]
     Active Substance: HYDROCORTISONE
     Indication: Product used for unknown indication
     Dosage: 5 MG, QD, THE DRUG HAD HAD BEEN DISCONTINUED AT THE DIRECTION OF THE REFERRAL SITE (DATE UNKNOWN).
     Route: 048
  8. FAMOTIDINE OD ME [Concomitant]
     Indication: Product used for unknown indication
     Dosage: 20 MG, QD
     Route: 048
  9. ZINC [Concomitant]
     Active Substance: ZINC
     Indication: Product used for unknown indication
     Dosage: 100 MG, BID
     Route: 048
  10. FOLIAMIN NICHIYAKU [Concomitant]
     Indication: Product used for unknown indication
     Dosage: 15 MG, TID
     Route: 048
  11. ELDECALCITOL [Concomitant]
     Active Substance: ELDECALCITOL
     Indication: Product used for unknown indication
     Dosage: 0.75 UG, QD
     Route: 048
  12. SODIUM FERROUS CITRATE [Concomitant]
     Active Substance: SODIUM FERROUS CITRATE
     Indication: Product used for unknown indication
     Dosage: UNK
     Route: 048
  13. URSO 1A PHARMA [Concomitant]
     Indication: Product used for unknown indication
     Dosage: UNK
     Route: 048
  14. DOTINURAD [Concomitant]
     Active Substance: DOTINURAD
     Indication: Product used for unknown indication
     Dosage: UNK
     Route: 048

REACTIONS (2)
  - Neuropathy peripheral [Recovering/Resolving]
  - Off label use [Unknown]

NARRATIVE: CASE EVENT DATE: 20210101
